FAERS Safety Report 9937356 (Version 1)
Quarter: 2014Q1

REPORT INFORMATION
  Report Type: Spontaneous
  Country: US (occurrence: US)
  Receive Date: 20140303
  Receipt Date: 20140303
  Transmission Date: 20141002
  Serious: No
  Sender: FDA-Public Use
  Company Number: US-009507513-1402USA010311

PATIENT
  Age: 22 Year
  Sex: Female

DRUGS (3)
  1. NEXPLANON [Suspect]
     Indication: CONTRACEPTION
     Dosage: UNK
     Route: 059
     Dates: start: 20121227
  2. ZOLOFT [Concomitant]
  3. VICODIN [Concomitant]

REACTIONS (7)
  - Nephrolithiasis [Not Recovered/Not Resolved]
  - Affective disorder [Unknown]
  - Abdominal pain upper [Not Recovered/Not Resolved]
  - Menstruation delayed [Unknown]
  - Ovarian cyst [Unknown]
  - Anxiety [Unknown]
  - Depression [Unknown]
